FAERS Safety Report 13901878 (Version 1)
Quarter: 2017Q3

REPORT INFORMATION
  Report Type: Report from Study
  Country: US (occurrence: US)
  Receive Date: 20170824
  Receipt Date: 20170824
  Transmission Date: 20171127
  Serious: Yes (Other)
  Sender: FDA-Public Use
  Company Number: US-ROCHE-1867840

PATIENT
  Sex: Female
  Weight: 129 kg

DRUGS (4)
  1. HERCEPTIN [Suspect]
     Active Substance: TRASTUZUMAB
     Indication: UTERINE CANCER
     Route: 042
     Dates: start: 201602
  2. HERCEPTIN [Suspect]
     Active Substance: TRASTUZUMAB
     Indication: UTERINE CANCER
     Route: 042
     Dates: start: 20170508
  3. HERCEPTIN [Suspect]
     Active Substance: TRASTUZUMAB
     Indication: BRAIN CONTUSION
     Dosage: ONGOING: UNKNOWN
     Route: 042
     Dates: start: 20170620
  4. TAXOL [Concomitant]
     Active Substance: PACLITAXEL
     Indication: UTERINE CANCER
     Dosage: ONGOING: YES
     Route: 042
     Dates: start: 201602

REACTIONS (3)
  - Off label use [Unknown]
  - Intentional product use issue [Unknown]
  - Disability [Unknown]
